FAERS Safety Report 19732315 (Version 3)
Quarter: 2021Q4

REPORT INFORMATION
  Report Type: Spontaneous
  Country: US (occurrence: US)
  Receive Date: 20210820
  Receipt Date: 20211020
  Transmission Date: 20220304
  Serious: Yes (Hospitalization)
  Sender: FDA-Public Use
  Company Number: US-SUN PHARMACEUTICAL INDUSTRIES LTD-2021R1-307792

PATIENT
  Sex: Female
  Weight: 83.45 kg

DRUGS (5)
  1. EPOPROSTENOL [Suspect]
     Active Substance: EPOPROSTENOL
     Indication: Pulmonary arterial hypertension
     Dosage: 46 NG/KG/MIN, CONTINUOUS
     Route: 042
     Dates: start: 20210323
  2. EPOPROSTENOL [Suspect]
     Active Substance: EPOPROSTENOL
     Dosage: 47 NG/KG/MIN, CONTINUOUS
     Route: 042
     Dates: start: 20210323
  3. EPOPROSTENOL [Suspect]
     Active Substance: EPOPROSTENOL
     Dosage: 49 NG/KG/MIN, CONTINUOUS
     Route: 042
     Dates: start: 20210323
  4. SILDENAFIL CITRATE [Concomitant]
     Active Substance: SILDENAFIL CITRATE
     Indication: Product used for unknown indication
     Dosage: UNK
     Route: 065
  5. ELIQUIS [Concomitant]
     Active Substance: APIXABAN
     Indication: Product used for unknown indication
     Dosage: UNK
     Route: 065

REACTIONS (8)
  - Atrial fibrillation [Unknown]
  - Chest discomfort [Unknown]
  - Diarrhoea [Unknown]
  - Muscle strain [Unknown]
  - Nausea [Unknown]
  - Extrasystoles [Unknown]
  - Palpitations [Unknown]
  - Injection site pruritus [Unknown]
